FAERS Safety Report 8875501 (Version 1)
Quarter: 2012Q4

REPORT INFORMATION
  Report Type: 
  Country: US (occurrence: US)
  Receive Date: 20121030
  Receipt Date: 20121030
  Transmission Date: 20130627
  Serious: No
  Sender: FDA-Public Use
  Company Number: US-ABBOTT-12P-163-0892941-00

PATIENT
  Sex: Female

DRUGS (3)
  1. KALETRA TABLETS [Suspect]
     Indication: PRODUCT USED FOR UNKNOWN INDICATION
     Dates: end: 2011
  2. KALETRA TABLETS [Suspect]
     Dates: start: 2011, end: 2011
  3. KALETRA TABLETS [Suspect]
     Dates: start: 2011

REACTIONS (1)
  - Hepatic enzyme increased [Recovered/Resolved]
